FAERS Safety Report 18745843 (Version 1)
Quarter: 2021Q1

REPORT INFORMATION
  Report Type: Spontaneous
  Country: US (occurrence: US)
  Receive Date: 20210114
  Receipt Date: 20210114
  Transmission Date: 20210419
  Serious: No
  Sender: FDA-Public Use
  Company Number: None

PATIENT
  Age: 39 Year
  Sex: Female
  Weight: 103.5 kg

DRUGS (12)
  1. MEDICATION FOR NIGHTMARES [Concomitant]
  2. FLOVENT [Concomitant]
     Active Substance: FLUTICASONE PROPIONATE
  3. ESCITALOPRAM [Concomitant]
     Active Substance: ESCITALOPRAM OXALATE
  4. FOLIC ACID. [Concomitant]
     Active Substance: FOLIC ACID
  5. MOOD SWING MEDICATION [Concomitant]
  6. NEXPLANON [Suspect]
     Active Substance: ETONOGESTREL
     Indication: CONTRACEPTION
     Dosage: ?          QUANTITY:1 DF DOSAGE FORM;OTHER FREQUENCY:EVERY 3 YRS;?
     Route: 058
     Dates: start: 20191010, end: 20191031
  7. INHALER [Concomitant]
     Active Substance: UNSPECIFIED INGREDIENT
  8. DEPRESSION MEDICATION [Concomitant]
     Active Substance: UNSPECIFIED INGREDIENT
  9. ANXIETY MEDICATION [Concomitant]
     Active Substance: UNSPECIFIED INGREDIENT
  10. D?3 [Concomitant]
     Active Substance: CHOLECALCIFEROL
  11. SLEEP MEDICATION [Concomitant]
     Active Substance: UNSPECIFIED INGREDIENT
  12. PRAZOSIN. [Concomitant]
     Active Substance: PRAZOSIN

REACTIONS (14)
  - Pain [None]
  - Scar [None]
  - Depressed mood [None]
  - Dysstasia [None]
  - Gait disturbance [None]
  - Contusion [None]
  - Skin discolouration [None]
  - Skin erosion [None]
  - Implantation complication [None]
  - Crying [None]
  - Musculoskeletal pain [None]
  - Wound [None]
  - Stress [None]
  - Complication associated with device [None]

NARRATIVE: CASE EVENT DATE: 20191017
